FAERS Safety Report 7204453-5 (Version None)
Quarter: 2010Q4

REPORT INFORMATION
  Report Type: 
  Country: None (occurrence: None)
  Receive Date: 20101230
  Receipt Date: 20101222
  Transmission Date: 20110411
  Serious: Yes (Other)
  Sender: FDA-Public Use
  Company Number: US-ABBOTT-10P-163-0693459-00

PATIENT
  Sex: Female
  Weight: 52.21 kg

DRUGS (1)
  1. SYNTHROID [Suspect]
     Indication: HYPOTHYROIDISM
     Dates: start: 20000101

REACTIONS (5)
  - ABDOMINAL DISCOMFORT [None]
  - COELIAC DISEASE [None]
  - FLATULENCE [None]
  - INTESTINAL OPERATION [None]
  - WEIGHT DECREASED [None]
